FAERS Safety Report 23336410 (Version 1)
Quarter: 2023Q4

REPORT INFORMATION
  Report Type: Report from Study
  Country: US (occurrence: US)
  Receive Date: 20231225
  Receipt Date: 20231225
  Transmission Date: 20240110
  Serious: Yes (Other)
  Sender: FDA-Public Use
  Company Number: US-ABBVIE-5554545

PATIENT
  Sex: Male

DRUGS (2)
  1. DUOPA [Suspect]
     Active Substance: CARBIDOPA\LEVODOPA
     Indication: Parkinson^s disease
     Dosage: 16 HOURS EACH DAY?MORNING DOSE: 15 ML, CONTINUOUS DOSE: 3.5 ML/HR (RANGE: 3.5-4 ML/HR), EXTRA DOS...
     Route: 050
     Dates: start: 202208
  2. DUOPA [Suspect]
     Active Substance: CARBIDOPA\LEVODOPA

REACTIONS (4)
  - Rehabilitation therapy [Unknown]
  - Mental impairment [Unknown]
  - Pain [Unknown]
  - Fall [Unknown]
